FAERS Safety Report 25589008 (Version 3)
Quarter: 2025Q4

REPORT INFORMATION
  Report Type: Report from Study
  Country: US (occurrence: US)
  Receive Date: 20250722
  Receipt Date: 20251121
  Transmission Date: 20260118
  Serious: Yes (Hospitalization, Other)
  Sender: ABBVIE
  Company Number: US-ABBVIE-6379965

PATIENT
  Age: 26 Year
  Sex: Female
  Weight: 63 kg

DRUGS (9)
  1. SKYRIZI [Suspect]
     Active Substance: RISANKIZUMAB-RZAA
     Indication: Crohn^s disease
     Dosage: FORM STRENGTH: 360 MILLIGRAM
     Route: 058
     Dates: start: 20250724
  2. SKYRIZI [Suspect]
     Active Substance: RISANKIZUMAB-RZAA
     Route: 058
     Dates: start: 20250325
  3. SKYRIZI [Suspect]
     Active Substance: RISANKIZUMAB-RZAA
     Indication: Crohn^s disease
     Dosage: FORM STRENGTH: 600 MILLIGRAM?LAST ADMIN DATE: 2025
     Route: 042
     Dates: start: 202502
  4. WELLBUTRIN [Concomitant]
     Active Substance: BUPROPION HYDROCHLORIDE
     Indication: Anxiety
  5. SPIRONOLACTONE [Concomitant]
     Active Substance: SPIRONOLACTONE
     Indication: Acne
     Route: 048
  6. SPIRONOLACTONE [Concomitant]
     Active Substance: SPIRONOLACTONE
     Indication: Acne
     Route: 048
  7. RINVOQ [Suspect]
     Active Substance: UPADACITINIB
     Indication: Crohn^s disease
     Dosage: FORM STRENGTH: 45 MILLIGRAM
     Route: 048
     Dates: start: 202403, end: 202407
  8. RINVOQ [Suspect]
     Active Substance: UPADACITINIB
     Indication: Crohn^s disease
     Dosage: FORM STRENGTH: 30 MILLIGRAM
     Route: 048
     Dates: start: 202407, end: 202410
  9. RINVOQ [Suspect]
     Active Substance: UPADACITINIB
     Indication: Crohn^s disease
     Dosage: FORM STRENGTH: 45 MILLIGRAM
     Route: 048
     Dates: start: 202411

REACTIONS (10)
  - Crohn^s disease [Recovered/Resolved]
  - Stoma site haemorrhage [Recovered/Resolved]
  - Transferrin saturation decreased [Not Recovered/Not Resolved]
  - C-reactive protein increased [Recovering/Resolving]
  - White blood cell count increased [Recovering/Resolving]
  - Terminal ileitis [Recovering/Resolving]
  - Haemoglobin decreased [Recovering/Resolving]
  - Nausea [Recovered/Resolved]
  - Fatigue [Not Recovered/Not Resolved]
  - Stoma site haemorrhage [Recovered/Resolved]

NARRATIVE: CASE EVENT DATE: 20241001
